FAERS Safety Report 8321180-1 (Version None)
Quarter: 2012Q2

REPORT INFORMATION
  Report Type: 
  Country: None (occurrence: None)
  Receive Date: 20120426
  Receipt Date: 20120426
  Transmission Date: 20120825
  Serious: Yes (Hospitalization)
  Sender: FDA-Public Use
  Company Number: None

PATIENT
  Sex: Female
  Weight: 22 kg

DRUGS (4)
  1. ETOPOSIDE [Suspect]
     Dosage: 640 MG
  2. DOXORUBICIN HYDROCHLORIDE [Suspect]
     Dosage: 77 MG
  3. CYCLOPHOSPHAMIDE [Suspect]
     Dosage: 4940 MG
  4. VINCRISTINE SULFATE [Suspect]
     Dosage: 7.8 MG

REACTIONS (13)
  - ASTHENIA [None]
  - ACIDOSIS [None]
  - SEPTIC SHOCK [None]
  - CONSTIPATION [None]
  - ABDOMINAL PAIN [None]
  - LETHARGY [None]
  - VOMITING [None]
  - POOR PERIPHERAL CIRCULATION [None]
  - NEUTROPENIA [None]
  - ACUTE RESPIRATORY FAILURE [None]
  - VISUAL ACUITY REDUCED [None]
  - HYPOTENSION [None]
  - INTESTINAL ISCHAEMIA [None]
